FAERS Safety Report 24345399 (Version 4)
Quarter: 2024Q4

REPORT INFORMATION
  Report Type: Spontaneous
  Country: US (occurrence: US)
  Receive Date: 20240920
  Receipt Date: 20241025
  Transmission Date: 20250115
  Serious: Yes (Hospitalization, Other)
  Sender: PFIZER
  Company Number: US-PFIZER INC-202400258940

PATIENT
  Age: 78 Year
  Sex: Male
  Weight: 55.782 kg

DRUGS (4)
  1. LORBRENA [Suspect]
     Active Substance: LORLATINIB
     Indication: Anaplastic lymphoma kinase gene mutation
     Dosage: 100 MG, 1X/DAY
     Route: 048
     Dates: start: 20240914, end: 20240918
  2. LORBRENA [Suspect]
     Active Substance: LORLATINIB
     Dosage: 200 MG (TOOK TWO TABLETS INSTEAD OF ONE TABLET)
     Route: 048
     Dates: start: 20240918, end: 20240918
  3. LORBRENA [Suspect]
     Active Substance: LORLATINIB
     Dosage: 100 MG
  4. LORBRENA [Suspect]
     Active Substance: LORLATINIB
     Dosage: TAKE 75 MG BY MOUTH DAILY
     Route: 048

REACTIONS (4)
  - Hypersensitivity [Unknown]
  - Atrial fibrillation [Unknown]
  - Accidental overdose [Not Recovered/Not Resolved]
  - Dyspnoea [Recovered/Resolved]

NARRATIVE: CASE EVENT DATE: 20240901
